FAERS Safety Report 8299039-8 (Version None)
Quarter: 2012Q2

REPORT INFORMATION
  Report Type: 
  Country: None (occurrence: None)
  Receive Date: 20120419
  Receipt Date: 20120412
  Transmission Date: 20120825
  Serious: Yes (Other)
  Sender: FDA-Public Use
  Company Number: FR-PFIZER INC-2012094322

PATIENT
  Age: 45 Year
  Sex: Female

DRUGS (1)
  1. EFFEXOR XR [Suspect]
     Dosage: 75 MG, UNK

REACTIONS (2)
  - GENITAL HAEMORRHAGE [None]
  - CONDITION AGGRAVATED [None]
